FAERS Safety Report 9316306 (Version 1)
Quarter: 2013Q2

REPORT INFORMATION
  Report Type: Spontaneous
  Country: US (occurrence: US)
  Receive Date: 20130530
  Receipt Date: 20130530
  Transmission Date: 20140414
  Serious: Yes (Other)
  Sender: FDA-Public Use
  Company Number: US-AMGEN-USASP2013037906

PATIENT
  Age: 59 Year
  Sex: Female
  Weight: 70.3 kg

DRUGS (18)
  1. ENBREL [Suspect]
     Indication: PRODUCT USED FOR UNKNOWN INDICATION
     Dosage: 50 MG, QWK
     Route: 058
  2. METHOTREXATE [Concomitant]
     Dosage: 2.5 MG, UNK
  3. PREVACID [Concomitant]
     Dosage: 30 MG, UNK,
  4. LASIX                              /00032601/ [Concomitant]
     Dosage: 20 MG, UNK
  5. POTASSIUM [Concomitant]
     Dosage: 99 MG, UNK
  6. VITAMIN D                          /00107901/ [Concomitant]
     Dosage: 1000 UNIT, UNK
  7. SINGULAIR [Concomitant]
     Dosage: 4 MG, UNK,
  8. AMLODIPINE [Concomitant]
     Dosage: 2.5 MG, UNK
  9. FOLIC ACID [Concomitant]
     Dosage: UNK
  10. FLONASE [Concomitant]
     Dosage: 0.05 %, UNK, SPR
  11. VYTORIN [Concomitant]
     Dosage: 10-10 MG, UNK
  12. COUMADIN                           /00627701/ [Concomitant]
     Dosage: 5 MG, UNK
  13. RECLAST [Concomitant]
     Dosage: 5/100 ML, UNK
  14. ASPIRIN [Concomitant]
     Dosage: 81 MG, UNK
  15. LISINOPRIL [Concomitant]
     Dosage: 10 MG, UNK
  16. CYMBALTA [Concomitant]
     Dosage: 20 MG, UNK
  17. COREG CR [Concomitant]
     Dosage: 10 MG, UNK
  18. PREDNISONE [Concomitant]
     Dosage: 5 MG, UNK

REACTIONS (3)
  - Cellulitis [Unknown]
  - Phlebitis [Unknown]
  - Thrombosis [Unknown]
